FAERS Safety Report 22219377 (Version 1)
Quarter: 2023Q2

REPORT INFORMATION
  Report Type: Spontaneous
  Country: US (occurrence: None)
  Receive Date: 20230414
  Receipt Date: 20230414
  Transmission Date: 20230722
  Serious: No
  Sender: FDA-Public Use
  Company Number: None

PATIENT
  Age: 79 Year
  Sex: Female
  Weight: 116.35 kg

DRUGS (21)
  1. LENALIDOMIDE [Suspect]
     Active Substance: LENALIDOMIDE
     Indication: 5q minus syndrome
     Dosage: OTHER FREQUENCY : 21DON7DOFF;?
     Route: 048
     Dates: end: 20230407
  2. ASPIRIN [Concomitant]
  3. AUGMENTIN [Concomitant]
  4. CALCIUM 600 + D [Concomitant]
  5. CEFDINIR [Concomitant]
     Active Substance: CEFDINIR
  6. CLARITIN [Concomitant]
  7. CYCLOBENZAPRINE [Concomitant]
  8. FAMOTIDINE [Concomitant]
  9. FISH OIL [Concomitant]
     Active Substance: FISH OIL
  10. LEVOTHYROXINE [Concomitant]
  11. MAGNESIUM [Concomitant]
  12. MIRALAX [Concomitant]
  13. MULTIVITAMIN [Concomitant]
  14. PREDNISOLONE [Concomitant]
  15. PREDNISONE [Concomitant]
  16. PYRIDIUM [Concomitant]
  17. SELENIUM [Concomitant]
     Active Substance: SELENIUM
  18. SENNA [Concomitant]
  19. TRIAMTERNE-HCTZ [Concomitant]
  20. TYLENOL [Concomitant]
     Active Substance: ACETAMINOPHEN
  21. VITAMIN D3 [Concomitant]

REACTIONS (1)
  - Full blood count abnormal [None]
